FAERS Safety Report 16729046 (Version 1)
Quarter: 2019Q3

REPORT INFORMATION
  Report Type: Spontaneous
  Country: FR (occurrence: FR)
  Receive Date: 20190822
  Receipt Date: 20190822
  Transmission Date: 20191005
  Serious: Yes (Hospitalization)
  Sender: FDA-Public Use
  Company Number: FR-PFIZER INC-2019355891

PATIENT
  Age: 43 Year
  Sex: Male
  Weight: 41 kg

DRUGS (2)
  1. CARBOPLATIN. [Suspect]
     Active Substance: CARBOPLATIN
     Indication: LARYNGEAL SQUAMOUS CELL CARCINOMA
     Route: 042
  2. TAXOTERE [Suspect]
     Active Substance: DOCETAXEL
     Indication: LARYNGEAL SQUAMOUS CELL CARCINOMA
     Route: 042

REACTIONS (6)
  - Diarrhoea [Recovered/Resolved]
  - Septic shock [Recovered/Resolved]
  - Pneumonia pseudomonal [Recovered/Resolved]
  - Off label use [Unknown]
  - Febrile bone marrow aplasia [Recovered/Resolved]
  - Product use in unapproved indication [Unknown]

NARRATIVE: CASE EVENT DATE: 20180501
